FAERS Safety Report 7349640-0 (Version None)
Quarter: 2011Q1

REPORT INFORMATION
  Report Type: 
  Country: None (occurrence: None)
  Receive Date: 20110314
  Receipt Date: 20100621
  Transmission Date: 20110831
  Serious: No
  Sender: FDA-Public Use
  Company Number: A0868286A

PATIENT
  Age: 13 Month
  Sex: Female
  Weight: 10.9 kg

DRUGS (3)
  1. CHILDREN'S MOTRIN [Suspect]
     Indication: EAR INFECTION
     Dosage: 5ML AS REQUIRED
     Dates: start: 20100417
  2. CHILDREN'S TYLENOL PLUS COUGH [Suspect]
     Indication: EAR INFECTION
     Dosage: 5ML AS REQUIRED
     Route: 048
     Dates: start: 20100417, end: 20100418
  3. AUGMENTIN '125' [Suspect]
     Indication: EAR INFECTION

REACTIONS (2)
  - PRODUCT QUALITY ISSUE [None]
  - GASTRIC DISORDER [None]
